FAERS Safety Report 25764471 (Version 1)
Quarter: 2025Q3

REPORT INFORMATION
  Report Type: Spontaneous
  Country: US (occurrence: US)
  Receive Date: 20250905
  Receipt Date: 20250905
  Transmission Date: 20251020
  Serious: No
  Sender: DOMPE FARMACEUTICI
  Company Number: US-FARMAPROD-202501-0242

PATIENT
  Age: 78 Year
  Sex: Female

DRUGS (6)
  1. OXERVATE [Suspect]
     Active Substance: CENEGERMIN-BKBJ
     Indication: Neurotrophic keratopathy
     Route: 047
     Dates: start: 20250113
  2. OXERVATE [Suspect]
     Active Substance: CENEGERMIN-BKBJ
  3. TEA TREE OIL [Concomitant]
     Active Substance: TEA TREE OIL
  4. IVIZIA DRY EYE [Concomitant]
     Active Substance: POVIDONE
  5. SYSTANE (HYPROMELLOSE 2910 (4000 MPA.S)) [Concomitant]
     Active Substance: HYPROMELLOSE 2910 (4000 MPA.S)
  6. ALENDRONATE SODIUM [Concomitant]
     Active Substance: ALENDRONATE SODIUM

REACTIONS (5)
  - Eye pain [Recovered/Resolved]
  - Eye irritation [Not Recovered/Not Resolved]
  - Eye irritation [Not Recovered/Not Resolved]
  - Visual impairment [Unknown]
  - Accidental overdose [Unknown]

NARRATIVE: CASE EVENT DATE: 20250120
